FAERS Safety Report 8225885-2 (Version None)
Quarter: 2012Q1

REPORT INFORMATION
  Report Type: 
  Country: None (occurrence: None)
  Receive Date: 20120321
  Receipt Date: 20120307
  Transmission Date: 20120608
  Serious: Yes (Hospitalization)
  Sender: FDA-Public Use
  Company Number: US-ROCHE-1049584

PATIENT
  Age: 80 Year
  Sex: Female

DRUGS (2)
  1. AVASTIN [Suspect]
     Indication: MALIGNANT PERITONEAL NEOPLASM
     Route: 042
  2. CARBOPLATIN [Concomitant]
     Indication: MALIGNANT PERITONEAL NEOPLASM

REACTIONS (6)
  - HYPONATRAEMIA [None]
  - FLUID OVERLOAD [None]
  - HYPERTENSION [None]
  - BRAIN NATRIURETIC PEPTIDE INCREASED [None]
  - CARDIAC FAILURE [None]
  - DISEASE RECURRENCE [None]
